FAERS Safety Report 7685759-2 (Version None)
Quarter: 2011Q3

REPORT INFORMATION
  Report Type: 
  Country: None (occurrence: None)
  Receive Date: 20110815
  Receipt Date: 20110815
  Transmission Date: 20111222
  Serious: No
  Sender: FDA-Public Use
  Company Number: None

PATIENT

DRUGS (1)
  1. OXYCODONE HCL AND ACETAMINOPHEN [Suspect]
     Indication: CONCUSSION
     Dosage: 1
     Route: 048
     Dates: start: 20110310, end: 20110331

REACTIONS (1)
  - HEPATIC PAIN [None]
